FAERS Safety Report 14535079 (Version 1)
Quarter: 2018Q1

REPORT INFORMATION
  Report Type: Spontaneous
  Country: US (occurrence: US)
  Receive Date: 20180214
  Receipt Date: 20180214
  Transmission Date: 20180509
  Serious: No
  Sender: FDA-Public Use
  Company Number: None

PATIENT
  Sex: Male
  Weight: 81 kg

DRUGS (4)
  1. LYRICA [Concomitant]
     Active Substance: PREGABALIN
  2. LEVORPHANOL [Suspect]
     Active Substance: LEVORPHANOL
     Indication: BACK PAIN
     Route: 048
     Dates: start: 20171113, end: 20180207
  3. LEVORPHANOL [Suspect]
     Active Substance: LEVORPHANOL
     Indication: ACCIDENT AT WORK
     Route: 048
     Dates: start: 20171113, end: 20180207
  4. OXYCODONE [Concomitant]
     Active Substance: OXYCODONE

REACTIONS (2)
  - Tinnitus [None]
  - Poor quality sleep [None]
